FAERS Safety Report 5475359-7 (Version None)
Quarter: 2007Q4

REPORT INFORMATION
  Report Type: 
  Country: None (occurrence: None)
  Receive Date: 20071001
  Receipt Date: 20070924
  Transmission Date: 20080405
  Serious: Yes (Hospitalization)
  Sender: FDA-Public Use
  Company Number: 2007SP019217

PATIENT
  Age: 53 Year
  Sex: Male
  Weight: 81.6475 kg

DRUGS (2)
  1. PEG-INTRON [Suspect]
     Indication: HEPATITIS C
     Dosage: SC
     Route: 058
     Dates: start: 20070611
  2. REBETOL [Suspect]
     Indication: HEPATITIS C
     Dosage: PO
     Route: 048
     Dates: start: 20070611

REACTIONS (7)
  - ANOREXIA [None]
  - ASTHENIA [None]
  - HYPERTHERMIA [None]
  - INFECTION [None]
  - PYREXIA [None]
  - RENAL FUNCTION TEST ABNORMAL [None]
  - WEIGHT DECREASED [None]
